FAERS Safety Report 11108681 (Version 2)
Quarter: 2015Q3

REPORT INFORMATION
  Report Type: Report from Study
  Country: US (occurrence: US)
  Receive Date: 20150513
  Receipt Date: 20150728
  Transmission Date: 20151125
  Serious: Yes (Other)
  Sender: FDA-Public Use
  Company Number: US-AMGEN-USASL2015045626

PATIENT
  Age: 46 Year
  Sex: Female
  Weight: 95.96 kg

DRUGS (2)
  1. METHOTREXATE [Concomitant]
     Active Substance: METHOTREXATE
     Indication: RHEUMATOID ARTHRITIS
     Dosage: 15 MG, UNK
     Route: 048
     Dates: start: 20110125, end: 201501
  2. ENBREL [Suspect]
     Active Substance: ETANERCEPT
     Indication: RHEUMATOID ARTHRITIS
     Dosage: 50 MG, QWK
     Route: 058
     Dates: start: 20120518, end: 201501

REACTIONS (5)
  - Mastitis [Not Recovered/Not Resolved]
  - Breast abscess [Not Recovered/Not Resolved]
  - Dermal cyst [Not Recovered/Not Resolved]
  - Wound [Not Recovered/Not Resolved]
  - Breast operation [Not Recovered/Not Resolved]

NARRATIVE: CASE EVENT DATE: 2013
